FAERS Safety Report 5263229-9 (Version None)
Quarter: 2007Q1

REPORT INFORMATION
  Report Type: 
  Country: None (occurrence: None)
  Receive Date: 20061219
  Receipt Date: 20061020
  Transmission Date: 20070707
  Serious: No
  Sender: FDA-Public Use
  Company Number: 2006US002343

PATIENT
  Age: 83 Year
  Sex: Female

DRUGS (6)
  1. VESICARE [Suspect]
     Indication: HYPERTONIC BLADDER
     Dosage: 5 MG, UID/QD, ORAL
     Route: 048
     Dates: start: 20060101, end: 20061001
  2. LIPITOR [Concomitant]
  3. PREVACID [Concomitant]
  4. DIOVAN [Concomitant]
  5. QUININE SULFATE [Concomitant]
  6. ECOTRIN [Concomitant]

REACTIONS (2)
  - CONSTIPATION [None]
  - DRUG INEFFECTIVE [None]
